FAERS Safety Report 12414729 (Version 3)
Quarter: 2016Q4

REPORT INFORMATION
  Report Type: Spontaneous
  Country: US (occurrence: US)
  Receive Date: 20160529
  Receipt Date: 20161109
  Transmission Date: 20170207
  Serious: No
  Sender: FDA-Public Use
  Company Number: US-SHIRE-US201606575

PATIENT
  Age: 10 Year
  Sex: Female
  Weight: 63.9 kg

DRUGS (3)
  1. VYVANSE [Suspect]
     Active Substance: LISDEXAMFETAMINE DIMESYLATE
     Dosage: 30 MG, UNKNOWN
     Route: 048
     Dates: end: 201403
  2. VYVANSE [Suspect]
     Active Substance: LISDEXAMFETAMINE DIMESYLATE
     Dosage: 40 MG, UNKNOWN
     Route: 048
     Dates: start: 201403, end: 201501
  3. VYVANSE [Suspect]
     Active Substance: LISDEXAMFETAMINE DIMESYLATE
     Indication: ATTENTION DEFICIT/HYPERACTIVITY DISORDER
     Dosage: 50 MG, 1X/DAY:QD (Q AM)
     Route: 048
     Dates: start: 201501, end: 20160620

REACTIONS (2)
  - Skin exfoliation [Recovering/Resolving]
  - Hyperhidrosis [Recovering/Resolving]

NARRATIVE: CASE EVENT DATE: 20150701
